FAERS Safety Report 5702355-4 (Version None)
Quarter: 2008Q2

REPORT INFORMATION
  Report Type: 
  Country: None (occurrence: None)
  Receive Date: 20080408
  Receipt Date: 20080327
  Transmission Date: 20081010
  Serious: Yes (Life-Threatening)
  Sender: FDA-Public Use
  Company Number: 100#03#2008-01736

PATIENT
  Age: 73 Year
  Sex: Male

DRUGS (7)
  1. CITALOPRAM (CITALOPRAM) [Suspect]
     Indication: DEPRESSION
     Dosage: 20 MG, ORAL
     Route: 048
  2. ACETYLSALICYLIC ACID SRT [Suspect]
     Indication: CARDIOVASCULAR DISORDER
     Dosage: 75 MG ONCE, ORAL
     Route: 048
  3. GABAPENTIN [Concomitant]
  4. LEVOTHYROXINE SODIUM [Concomitant]
  5. OMEPRAZOLE [Concomitant]
  6. SIMVASTATIN [Concomitant]
  7. TOLTERODINE TARTRATE [Concomitant]

REACTIONS (2)
  - GASTROINTESTINAL HAEMORRHAGE [None]
  - OESOPHAGEAL ULCER [None]
